FAERS Safety Report 4921242-2 (Version None)
Quarter: 2006Q1

REPORT INFORMATION
  Report Type: 
  Country: None (occurrence: None)
  Receive Date: 20060224
  Receipt Date: 20060217
  Transmission Date: 20060701
  Serious: Yes (Other)
  Sender: FDA-Public Use
  Company Number: PHRM2006FR00835

PATIENT
  Age: 80 Year
  Sex: Male

DRUGS (1)
  1. LAMISIL [Suspect]
     Indication: NAIL TINEA
     Dosage: 250 MG DAILY
     Route: 048
     Dates: start: 20051101, end: 20060101

REACTIONS (1)
  - WOUND NECROSIS [None]
